FAERS Safety Report 7607630-4 (Version None)
Quarter: 2011Q3

REPORT INFORMATION
  Report Type: 
  Country: None (occurrence: None)
  Receive Date: 20110713
  Receipt Date: 20110124
  Transmission Date: 20111222
  Serious: Yes (Hospitalization, Other)
  Sender: FDA-Public Use
  Company Number: PHHY2011TW05811

PATIENT
  Sex: Female
  Weight: 54 kg

DRUGS (1)
  1. TASIGNA [Suspect]
     Indication: MYELOID LEUKAEMIA
     Dosage: 200 MG, BID
     Route: 048
     Dates: start: 20100612

REACTIONS (18)
  - PNEUMONIA [None]
  - RASH [None]
  - WHEEZING [None]
  - DYSPNOEA [None]
  - NODULE [None]
  - TACHYPNOEA [None]
  - HERPES ZOSTER [None]
  - MUSCULOSKELETAL PAIN [None]
  - LIMB DISCOMFORT [None]
  - MUSCULAR WEAKNESS [None]
  - PYREXIA [None]
  - MALAISE [None]
  - RHINORRHOEA [None]
  - PRODUCTIVE COUGH [None]
  - LUNG INFILTRATION [None]
  - PAIN [None]
  - WHITE BLOOD CELL COUNT INCREASED [None]
  - RALES [None]
